FAERS Safety Report 13909271 (Version 1)
Quarter: 2017Q3

REPORT INFORMATION
  Report Type: Spontaneous
  Country: US (occurrence: US)
  Receive Date: 20170828
  Receipt Date: 20170828
  Transmission Date: 20171127
  Serious: No
  Sender: FDA-Public Use
  Company Number: US-ENDO PHARMACEUTICALS INC-2016-006167

PATIENT
  Age: 47 Year
  Sex: Female
  Weight: 86.26 kg

DRUGS (2)
  1. PREDNISONE TABLETS [Suspect]
     Active Substance: PREDNISONE
     Indication: DEAFNESS
     Dosage: 4 DF, UNKNOWN
     Route: 048
     Dates: start: 20160922, end: 20160922
  2. PREDNISONE TABLETS [Suspect]
     Active Substance: PREDNISONE
     Indication: AUTOIMMUNE DISORDER

REACTIONS (5)
  - Off label use [Unknown]
  - Abdominal distension [Recovered/Resolved]
  - Abdominal discomfort [Recovered/Resolved]
  - Nausea [Recovered/Resolved]
  - Flatulence [Recovered/Resolved]

NARRATIVE: CASE EVENT DATE: 20160922
